FAERS Safety Report 6944736-7 (Version None)
Quarter: 2010Q3

REPORT INFORMATION
  Report Type: 
  Country: None (occurrence: None)
  Receive Date: 20100827
  Receipt Date: 20100816
  Transmission Date: 20110219
  Serious: Yes (Other)
  Sender: FDA-Public Use
  Company Number: CA-JNJFOC-20100808133

PATIENT
  Sex: Male
  Weight: 80 kg

DRUGS (13)
  1. REMICADE [Suspect]
     Indication: CROHN'S DISEASE
     Dosage: INITIATED IN OCT (YEAR UNREADABLE--2003 OR 2008)
     Route: 042
  2. REMICADE [Suspect]
     Indication: ANKYLOSING SPONDYLITIS
     Dosage: INITIATED IN OCT (YEAR UNREADABLE--2003 OR 2008)
     Route: 042
  3. ASACOL [Concomitant]
  4. PREDNISONE [Concomitant]
  5. MTX [Concomitant]
  6. ZANTAC [Concomitant]
  7. QUININE [Concomitant]
  8. TYLENOL W/ CODEINE NO. 4 [Concomitant]
  9. LYRICA [Concomitant]
  10. FLUCONAZOLE [Concomitant]
  11. ACTONEL [Concomitant]
  12. VERAPAMIL [Concomitant]
  13. DEMEROL [Concomitant]

REACTIONS (4)
  - CHROMATURIA [None]
  - COLD SWEAT [None]
  - DIABETES MELLITUS [None]
  - HYPERHIDROSIS [None]
